FAERS Safety Report 7591796-9 (Version None)
Quarter: 2011Q2

REPORT INFORMATION
  Report Type: 
  Country: None (occurrence: None)
  Receive Date: 20110627
  Receipt Date: 20110617
  Transmission Date: 20111010
  Serious: Yes (Death)
  Sender: FDA-Public Use
  Company Number: B0727219A

PATIENT
  Sex: 0

DRUGS (1)
  1. PAROXETINE HYDROCHLORIDE [Suspect]
     Dosage: / TRANSPLACENTARY
     Route: 064

REACTIONS (2)
  - DEATH NEONATAL [None]
  - MATERNAL DEATH AFFECTING FOETUS [None]
